FAERS Safety Report 9036622 (Version 1)
Quarter: 2013Q1

REPORT INFORMATION
  Report Type: Spontaneous
  Country: US (occurrence: None)
  Receive Date: 20130117
  Receipt Date: 20130117
  Transmission Date: 20140127
  Serious: Yes (Death)
  Sender: FDA-Public Use
  Company Number: None

PATIENT
  Age: 64 None
  Sex: Female

DRUGS (9)
  1. RIVAROXABAN [Suspect]
     Indication: ATRIAL FIBRILLATION
     Dosage: DATES OF THERAPY: BOTH RECEIVED FOR ABOUT A MONTH.
  2. ASA [Suspect]
     Dosage: DATES OF THERAPY: BOTH RECEIVED FOR ABOUT A MONTH.
  3. CARDIZEM [Concomitant]
  4. PRILOSEC [Concomitant]
  5. NIASPAN [Concomitant]
  6. METOPROLOL [Concomitant]
  7. COQ10 [Concomitant]
  8. VITAMIN [Concomitant]
  9. FISH OIL [Concomitant]

REACTIONS (3)
  - Intraventricular haemorrhage [None]
  - Hydrocephalus [None]
  - Hypertension [None]
